FAERS Safety Report 25607189 (Version 2)
Quarter: 2025Q3

REPORT INFORMATION
  Report Type: Report from Study
  Country: GB (occurrence: GB)
  Receive Date: 20250725
  Receipt Date: 20250926
  Transmission Date: 20251020
  Serious: Yes (Hospitalization)
  Sender: AMGEN
  Company Number: GB-002147023-NVSC2025GB114847

PATIENT
  Sex: Female

DRUGS (1)
  1. AIMOVIG [Suspect]
     Active Substance: ERENUMAB-AOOE
     Indication: Migraine
     Dosage: 1 DOSAGE FORM, Q4W (INJECT 140 MG PRE-FILLED PEN EVERY FOUR WEEKS)
     Route: 058
     Dates: start: 202407

REACTIONS (2)
  - Pancreatitis [Unknown]
  - Cholelithiasis [Unknown]
